FAERS Safety Report 23567510 (Version 3)
Quarter: 2024Q2

REPORT INFORMATION
  Report Type: Spontaneous
  Country: US (occurrence: US)
  Receive Date: 20240226
  Receipt Date: 20240404
  Transmission Date: 20240715
  Serious: No
  Sender: FDA-Public Use
  Company Number: US-Calliditas-2024CAL00231

PATIENT
  Age: 44 Year
  Sex: Male
  Weight: 61 kg

DRUGS (5)
  1. TARPEYO [Suspect]
     Active Substance: BUDESONIDE
     Indication: IgA nephropathy
     Dosage: 16 MG (4 MG CAPSULES) ONCE DAILY
     Route: 048
     Dates: start: 20240203
  2. VITAMIN B COMPLEX [CYANOCOBALAMIN] [Concomitant]
  3. CALCIUM [Concomitant]
     Active Substance: CALCIUM
  4. FISH OIL [Concomitant]
     Active Substance: FISH OIL
  5. IRON [Concomitant]
     Active Substance: IRON

REACTIONS (6)
  - Hunger [Not Recovered/Not Resolved]
  - Insomnia [Not Recovered/Not Resolved]
  - Irritability [Unknown]
  - Headache [Unknown]
  - COVID-19 [Unknown]
  - Proteinuria [Unknown]

NARRATIVE: CASE EVENT DATE: 20240207
